FAERS Safety Report 22388855 (Version 1)
Quarter: 2023Q2

REPORT INFORMATION
  Report Type: Spontaneous
  Country: US (occurrence: None)
  Receive Date: 20230530
  Receipt Date: 20230530
  Transmission Date: 20230721
  Serious: No
  Sender: FDA-Public Use
  Company Number: None

PATIENT
  Age: 63 Year
  Sex: Female
  Weight: 81 kg

DRUGS (2)
  1. OFLOXACIN [Suspect]
     Active Substance: OFLOXACIN
     Indication: Conjunctivitis
     Dosage: OTHER QUANTITY : 2 DROP(S);?FREQUENCY : 3 TIMES A DAY;?
     Route: 047
  2. Synthroid 137 mcg QD [Concomitant]

REACTIONS (2)
  - Eye irritation [None]
  - Throat tightness [None]

NARRATIVE: CASE EVENT DATE: 20230304
